APPROVED DRUG PRODUCT: MIDAZOLAM HYDROCHLORIDE
Active Ingredient: MIDAZOLAM HYDROCHLORIDE
Strength: EQ 1MG BASE/ML
Dosage Form/Route: INJECTABLE;INJECTION
Application: A076144 | Product #001
Applicant: INTERNATIONAL MEDICATED SYSTEMS LTD
Approved: Jan 26, 2005 | RLD: No | RS: No | Type: DISCN